FAERS Safety Report 8462445-2 (Version None)
Quarter: 2012Q2

REPORT INFORMATION
  Report Type: 
  Country: None (occurrence: None)
  Receive Date: 20120625
  Receipt Date: 20120616
  Transmission Date: 20120825
  Serious: Yes (Hospitalization, Other)
  Sender: FDA-Public Use
  Company Number: CA-JNJFOC-20120607615

PATIENT
  Sex: Female
  Weight: 74 kg

DRUGS (13)
  1. ZOPICLONE [Concomitant]
     Indication: SLEEP DISORDER
     Route: 065
  2. PERINDOPRIL ERBUMINE [Concomitant]
     Indication: HYPERTENSION
     Route: 065
  3. HYDROCHLOROTHIAZIDE [Concomitant]
     Indication: HYPERTENSION
     Route: 065
  4. TRAZODONE HCL [Concomitant]
     Indication: DEPRESSION
     Route: 065
  5. REMICADE [Suspect]
     Indication: PSORIATIC ARTHROPATHY
     Dosage: 37TH INFUSION
     Route: 042
     Dates: start: 20120425
  6. METHOTREXATE [Concomitant]
     Dosage: 1 CC
     Route: 058
     Dates: end: 20120514
  7. DESLORATADINE [Concomitant]
     Indication: PREMEDICATION
     Route: 048
  8. SOLU-CORTEF [Concomitant]
     Indication: PREMEDICATION
     Route: 042
  9. REMICADE [Suspect]
     Route: 042
     Dates: start: 20080101
  10. ESCITALOPRAM [Concomitant]
     Indication: DEPRESSION
     Route: 065
  11. REMICADE [Suspect]
     Dosage: 38TH INFUSION
     Route: 042
     Dates: start: 20120614
  12. REMICADE [Suspect]
     Route: 042
     Dates: start: 20070101
  13. CRESTOR [Concomitant]
     Indication: BLOOD CHOLESTEROL INCREASED
     Route: 065

REACTIONS (4)
  - HYSTERECTOMY [None]
  - PELVIC MASS [None]
  - OVARIAN CANCER [None]
  - SALPINGO-OOPHORECTOMY [None]
